FAERS Safety Report 15867882 (Version 1)
Quarter: 2019Q1

REPORT INFORMATION
  Report Type: Spontaneous
  Country: GB (occurrence: GB)
  Receive Date: 20190125
  Receipt Date: 20190125
  Transmission Date: 20190417
  Serious: Yes (Death, Hospitalization)
  Sender: FDA-Public Use
  Company Number: GB-PFIZER INC-2019032905

PATIENT
  Age: 87 Year
  Sex: Female
  Weight: 85 kg

DRUGS (2)
  1. HYDROCORTISONE. [Concomitant]
     Active Substance: HYDROCORTISONE
     Dosage: UNK
  2. FLUCONAZOLE. [Suspect]
     Active Substance: FLUCONAZOLE
     Indication: CANDIDA INFECTION
     Dosage: 50 MG, DAILY
     Route: 048
     Dates: start: 20181013

REACTIONS (5)
  - Coma [Not Recovered/Not Resolved]
  - Stevens-Johnson syndrome [Fatal]
  - Rash generalised [Not Recovered/Not Resolved]
  - Blister rupture [Not Recovered/Not Resolved]
  - Mucous membrane disorder [Not Recovered/Not Resolved]

NARRATIVE: CASE EVENT DATE: 20181017
